FAERS Safety Report 5042850-7 (Version None)
Quarter: 2006Q3

REPORT INFORMATION
  Report Type: 
  Country: None (occurrence: None)
  Receive Date: 20060705
  Receipt Date: 20060306
  Transmission Date: 20061208
  Serious: Yes (Other)
  Sender: FDA-Public Use
  Company Number: 438258

PATIENT
  Age: 61 Year
  Sex: Male

DRUGS (2)
  1. CARVEDILOL [Suspect]
     Dosage: 6.25MG PER DAY
     Route: 048
     Dates: start: 20050115, end: 20051215
  2. ENALAPRIL [Concomitant]
     Dates: start: 20030115

REACTIONS (2)
  - CARDIOPULMONARY FAILURE [None]
  - MUSCULOSKELETAL STIFFNESS [None]
